FAERS Safety Report 5510417-X (Version None)
Quarter: 2007Q4

REPORT INFORMATION
  Report Type: 
  Country: None (occurrence: None)
  Receive Date: 20071108
  Receipt Date: 20071101
  Transmission Date: 20080405
  Serious: Yes (Hospitalization)
  Sender: FDA-Public Use
  Company Number: BR-ABBOTT-07P-020-0423112-00

PATIENT
  Sex: Female

DRUGS (4)
  1. HUMIRA [Suspect]
     Indication: DRUG USE FOR UNKNOWN INDICATION
     Route: 058
     Dates: start: 20070501
  2. ANTIBIOTICS [Concomitant]
     Indication: ANTIBIOTIC PROPHYLAXIS
  3. UNKNOWN [Concomitant]
     Indication: ANTIINFLAMMATORY THERAPY
  4. VALSARTAN [Concomitant]
     Indication: BLOOD PRESSURE ABNORMAL

REACTIONS (1)
  - OVARIAN CYST [None]
